FAERS Safety Report 4680107-4 (Version None)
Quarter: 2005Q2

REPORT INFORMATION
  Report Type: 
  Country: None (occurrence: None)
  Receive Date: 20050602
  Receipt Date: 20050526
  Transmission Date: 20051028
  Serious: Yes (Other)
  Sender: FDA-Public Use
  Company Number: US-BRISTOL-MYERS SQUIBB COMPANY-12987483

PATIENT

DRUGS (2)
  1. SUSTIVA [Suspect]
     Dates: start: 20000801
  2. COMBIVIR [Concomitant]

REACTIONS (1)
  - LIVER DISORDER [None]
